FAERS Safety Report 4327119-8 (Version None)
Quarter: 2004Q1

REPORT INFORMATION
  Report Type: 
  Country: None (occurrence: None)
  Receive Date: 20040330
  Receipt Date: 20030617
  Transmission Date: 20041129
  Serious: Yes (Hospitalization)
  Sender: FDA-Public Use
  Company Number: US-GLAXOSMITHKLINE-A0413821A

PATIENT
  Age: 54 Year
  Sex: Male

DRUGS (7)
  1. AVANDIA [Suspect]
     Indication: DIABETES MELLITUS NON-INSULIN-DEPENDENT
     Route: 048
     Dates: start: 20000218, end: 20020101
  2. HUMULIN 70/30 [Concomitant]
     Indication: DIABETES MELLITUS NON-INSULIN-DEPENDENT
     Dosage: 60U TWICE PER DAY
     Route: 058
  3. HUMALOG [Concomitant]
     Indication: DIABETES MELLITUS NON-INSULIN-DEPENDENT
     Dosage: 15U TWICE PER DAY
     Route: 058
  4. PERCOCET [Concomitant]
     Indication: PAIN
     Route: 048
  5. GLUCOPHAGE [Concomitant]
     Indication: DIABETES MELLITUS NON-INSULIN-DEPENDENT
     Dosage: 500MG FOUR TIMES PER DAY
     Route: 048
  6. TEMAZEPAM [Concomitant]
     Dosage: 30MG AT NIGHT
     Route: 048
  7. VIAGRA [Concomitant]
     Indication: ERECTILE DYSFUNCTION
     Route: 048

REACTIONS (18)
  - ANAEMIA [None]
  - BLOOD CREATININE INCREASED [None]
  - BONE MARROW DEPRESSION [None]
  - CARDIAC FAILURE CONGESTIVE [None]
  - CORONARY ARTERY DISEASE [None]
  - DECUBITUS ULCER [None]
  - EPENDYMOMA MALIGNANT [None]
  - HYPERKALAEMIA [None]
  - HYPONATRAEMIA [None]
  - INTERVERTEBRAL DISC DEGENERATION [None]
  - ISCHAEMIC CARDIOMYOPATHY [None]
  - LIVER FUNCTION TEST ABNORMAL [None]
  - MYOCARDIAL INFARCTION [None]
  - NEOPLASM RECURRENCE [None]
  - NEPHROLITHIASIS [None]
  - PSEUDOMONAS INFECTION [None]
  - RENAL FAILURE ACUTE [None]
  - VENTRICULAR DYSFUNCTION [None]
